FAERS Safety Report 13188718 (Version 2)
Quarter: 2017Q1

REPORT INFORMATION
  Report Type: Spontaneous
  Country: JP (occurrence: JP)
  Receive Date: 20170206
  Receipt Date: 20170222
  Transmission Date: 20170428
  Serious: Yes (Death, Life-Threatening)
  Sender: FDA-Public Use
  Company Number: JP-BIOCRYST PHARMACEUTICALS, INC.-2017BCR00023

PATIENT
  Age: 87 Year
  Sex: Female

DRUGS (2)
  1. RAPIACTA [Suspect]
     Active Substance: PERAMIVIR
     Indication: INFLUENZA
     Dosage: 300 MG, UNK
     Route: 042
     Dates: start: 20170121, end: 20170121
  2. TAMIFLU [Concomitant]
     Active Substance: OSELTAMIVIR PHOSPHATE
     Dosage: 75 MG, 1X/DAY
     Route: 048
     Dates: start: 20170120, end: 20170120

REACTIONS (3)
  - Oliguria [Not Recovered/Not Resolved]
  - Lung neoplasm malignant [Fatal]
  - Influenza [Fatal]

NARRATIVE: CASE EVENT DATE: 20170121
